FAERS Safety Report 17435988 (Version 3)
Quarter: 2020Q2

REPORT INFORMATION
  Report Type: Report from Study
  Country: IT (occurrence: IT)
  Receive Date: 20200219
  Receipt Date: 20200611
  Transmission Date: 20200713
  Serious: Yes (Hospitalization, Other)
  Sender: FDA-Public Use
  Company Number: IT-UCBSA-2019044896

PATIENT
  Age: 68 Year
  Sex: Male
  Weight: 75 kg

DRUGS (3)
  1. LACOSAMIDE EP [Suspect]
     Active Substance: LACOSAMIDE
     Dosage: 150 MILLIGRAM, 2X/DAY (BID)
  2. LACOSAMIDE EP [Suspect]
     Active Substance: LACOSAMIDE
     Indication: EPILEPSY
     Dosage: 100 MG
  3. LACOSAMIDE EP [Suspect]
     Active Substance: LACOSAMIDE
     Dosage: 100 MG AM AND 150 MG EVENING

REACTIONS (5)
  - Hypersensitivity [Recovered/Resolved]
  - Intentional product misuse [Unknown]
  - Drug ineffective [Unknown]
  - Off label use [Unknown]
  - Syncope [Unknown]

NARRATIVE: CASE EVENT DATE: 2019
